FAERS Safety Report 7824647-5 (Version None)
Quarter: 2011Q4

REPORT INFORMATION
  Report Type: 
  Country: None (occurrence: None)
  Receive Date: 20111019
  Receipt Date: 20111010
  Transmission Date: 20120403
  Serious: Yes (Hospitalization)
  Sender: FDA-Public Use
  Company Number: FR-B.I. PHARMACEUTICALS,INC./RIDGEFIELD-2011-FF-00944FF

PATIENT
  Age: 60 Year
  Sex: Female

DRUGS (1)
  1. PRADAXA [Suspect]
     Indication: KNEE ARTHROPLASTY
     Dosage: 220 MG
     Route: 048
     Dates: start: 20110907, end: 20110910

REACTIONS (3)
  - POST PROCEDURAL HAEMATOMA [None]
  - PROTHROMBIN TIME SHORTENED [None]
  - ACTIVATED PARTIAL THROMBOPLASTIN TIME PROLONGED [None]
